FAERS Safety Report 19774657 (Version 2)
Quarter: 2021Q3

REPORT INFORMATION
  Report Type: Spontaneous
  Country: DE (occurrence: DE)
  Receive Date: 20210901
  Receipt Date: 20210920
  Transmission Date: 20211014
  Serious: Yes (Hospitalization, Other)
  Sender: FDA-Public Use
  Company Number: DE-NOVOPROD-841277

PATIENT
  Age: 21 Year
  Sex: Male

DRUGS (3)
  1. ESPEROCT [Suspect]
     Active Substance: ANTIHEMOPHILIC FACTOR, HUMAN RECOMBINANT
     Indication: HAEMOPHILIA
     Dosage: 4000 IU
     Route: 042
     Dates: start: 20210713
  2. ESPEROCT [Suspect]
     Active Substance: ANTIHEMOPHILIC FACTOR, HUMAN RECOMBINANT
     Dosage: 4000 IU
     Route: 042
     Dates: start: 20210714, end: 20210714
  3. ESPEROCT [Suspect]
     Active Substance: ANTIHEMOPHILIC FACTOR, HUMAN RECOMBINANT
     Dosage: 3000 IU
     Route: 042
     Dates: start: 20210714

REACTIONS (3)
  - Coagulation factor VIII level decreased [Unknown]
  - Haematoma muscle [Unknown]
  - Drug ineffective [Recovered/Resolved]

NARRATIVE: CASE EVENT DATE: 20210713
